FAERS Safety Report 12331156 (Version 3)
Quarter: 2016Q2

REPORT INFORMATION
  Report Type: Spontaneous
  Country: US (occurrence: US)
  Receive Date: 20160504
  Receipt Date: 20160609
  Transmission Date: 20160815
  Serious: Yes (Other)
  Sender: FDA-Public Use
  Company Number: US-SA-2016SA063689

PATIENT
  Age: 54 Year
  Sex: Male

DRUGS (8)
  1. ALIROCUMAB PREFILLED PEN [Concomitant]
     Active Substance: ALIROCUMAB
     Indication: TYPE V HYPERLIPIDAEMIA
  2. POTASSIUM [Concomitant]
     Active Substance: POTASSIUM
  3. PRALUENT [Suspect]
     Active Substance: ALIROCUMAB
     Indication: TYPE V HYPERLIPIDAEMIA
     Route: 058
     Dates: start: 20151223
  4. ALIROCUMAB PREFILLED PEN [Concomitant]
     Active Substance: ALIROCUMAB
     Indication: TYPE V HYPERLIPIDAEMIA
     Route: 058
     Dates: start: 20151223
  5. METOPROLOL. [Concomitant]
     Active Substance: METOPROLOL
  6. FUROSEMIDE. [Concomitant]
     Active Substance: FUROSEMIDE
  7. PRALUENT [Suspect]
     Active Substance: ALIROCUMAB
     Indication: TYPE V HYPERLIPIDAEMIA
     Route: 058
  8. PANTHENOL/RETINOL/THIAMINE HYDROCHLORIDE/ASCORBIC ACID/ERGOCALCIFEROL/FOLIC ACID/RIBOFLAVIN/NICOTINA [Concomitant]

REACTIONS (4)
  - Myalgia [Unknown]
  - Blood pressure increased [Unknown]
  - Cardiac disorder [Unknown]
  - Malaise [Unknown]

NARRATIVE: CASE EVENT DATE: 20160317
